FAERS Safety Report 17828609 (Version 3)
Quarter: 2020Q2

REPORT INFORMATION
  Report Type: Spontaneous
  Country: US (occurrence: US)
  Receive Date: 20200527
  Receipt Date: 20200630
  Transmission Date: 20200714
  Serious: Yes (Hospitalization, Congenital Anomaly, Other)
  Sender: FDA-Public Use
  Company Number: US-CATALYST PHARMACEUTICALS, INC-2020CAT00210

PATIENT
  Age: 0 Year
  Sex: Female
  Weight: 2.52 kg

DRUGS (6)
  1. MELATONIN [Concomitant]
     Active Substance: MELATONIN
     Route: 064
  2. MESTINON [Concomitant]
     Active Substance: PYRIDOSTIGMINE BROMIDE
     Dosage: 180 MG, 2X/DAY
     Route: 064
  3. FIRDAPSE [Suspect]
     Active Substance: AMIFAMPRIDINE
     Dosage: UNK
     Route: 064
  4. UNSPECIFIED MEDICATION FOR THRUSH [Suspect]
     Active Substance: UNSPECIFIED INGREDIENT
     Dosage: UNK
     Dates: start: 202005
  5. UNSPECIFIED ANTIDEPRESSANT [Concomitant]
     Active Substance: UNSPECIFIED INGREDIENT
     Route: 064
  6. MESTINON [Concomitant]
     Active Substance: PYRIDOSTIGMINE BROMIDE
     Dosage: 120 MG, 1X/DAY (AT NIGHT)
     Route: 064

REACTIONS (19)
  - Ankyloglossia congenital [Not Recovered/Not Resolved]
  - Hypothermia [Recovered/Resolved]
  - Regurgitation [Recovering/Resolving]
  - Lethargy [Recovered/Resolved]
  - Cardiac arrest [Recovered/Resolved]
  - Oral candidiasis [Recovered/Resolved]
  - Eye movement disorder [Not Recovered/Not Resolved]
  - Umbilical cord vascular disorder [Recovered/Resolved]
  - Labial tie [Not Recovered/Not Resolved]
  - Skin wound [Unknown]
  - Productive cough [Not Recovered/Not Resolved]
  - Low birth weight baby [Not Recovered/Not Resolved]
  - Hypotonia [Not Recovered/Not Resolved]
  - Jaundice neonatal [Recovering/Resolving]
  - Floppy infant [Recovered/Resolved]
  - Weight decrease neonatal [Recovering/Resolving]
  - Foetal exposure during pregnancy [Recovered/Resolved]
  - Poor feeding infant [Recovering/Resolving]
  - Lactose intolerance [Not Recovered/Not Resolved]

NARRATIVE: CASE EVENT DATE: 2019
